FAERS Safety Report 10412328 (Version 1)
Quarter: 2014Q2

REPORT INFORMATION
  Report Type: Spontaneous
  Country: US (occurrence: None)
  Receive Date: 20140604
  Receipt Date: 20140604
  Transmission Date: 20141212
  Serious: Yes (Other)
  Sender: FDA-Public Use
  Company Number: 20100119CINRY1335

PATIENT
  Age: 20 Year
  Sex: Female

DRUGS (2)
  1. CINRYZE (C1 ESTERASE INHIBITOR  (HUMAN)) (500 UNIT, INJECTION FOR INFUSION) (C1 ESTERASE INHIBITOR (HUMAN)) [Suspect]
     Indication: HEREDITARY ANGIOEDEMA
     Dosage: 1000 UNIT
     Route: 042
  2. CINRYZE (C1 ESTERASE INHIBITOR  (HUMAN)) (500 UNIT, INJECTION FOR INFUSION) (C1 ESTERASE INHIBITOR (HUMAN)) [Suspect]
     Indication: PROPHYLAXIS
     Dosage: 1000 UNIT
     Route: 042

REACTIONS (5)
  - Hereditary angioedema [None]
  - Local swelling [None]
  - Inappropriate schedule of drug administration [None]
  - Inappropriate schedule of drug administration [None]
  - Laryngeal disorder [None]
